FAERS Safety Report 6733623-5 (Version None)
Quarter: 2010Q2

REPORT INFORMATION
  Report Type: 
  Country: None (occurrence: None)
  Receive Date: 20100520
  Receipt Date: 20100419
  Transmission Date: 20101027
  Serious: Yes (Other)
  Sender: FDA-Public Use
  Company Number: JP-PFIZER INC-2010063267

PATIENT
  Age: 72 Year
  Sex: Female

DRUGS (4)
  1. ALDACTONE [Suspect]
     Route: 048
  2. ETANERCEPT [Suspect]
     Indication: RHEUMATOID ARTHRITIS
     Dosage: UNK
     Route: 058
  3. RHEUMATREX [Suspect]
     Dosage: 4 DF, DAILY
     Route: 048
  4. LASIX [Suspect]

REACTIONS (2)
  - LIVER FUNCTION TEST ABNORMAL [None]
  - RHEUMATOID ARTHRITIS [None]
